FAERS Safety Report 4718100-5 (Version None)
Quarter: 2005Q3

REPORT INFORMATION
  Report Type: 
  Country: None (occurrence: None)
  Receive Date: 20050720
  Receipt Date: 20050708
  Transmission Date: 20060218
  Serious: Yes (Disabling)
  Sender: FDA-Public Use
  Company Number: US-BRISTOL-MYERS SQUIBB COMPANY-13030820

PATIENT
  Sex: Male

DRUGS (1)
  1. KENALOG [Suspect]
     Route: 008
     Dates: start: 20040901

REACTIONS (1)
  - ARACHNOIDITIS [None]
